FAERS Safety Report 20983772 (Version 1)
Quarter: 2022Q2

REPORT INFORMATION
  Report Type: Spontaneous
  Country: US (occurrence: US)
  Receive Date: 20220621
  Receipt Date: 20220621
  Transmission Date: 20220721
  Serious: Yes (Hospitalization)
  Sender: FDA-Public Use
  Company Number: US-BRISTOL-MYERS SQUIBB COMPANY-2022-055160

PATIENT
  Age: 73 Year
  Sex: Male
  Weight: 64.41 kg

DRUGS (4)
  1. REVLIMID [Suspect]
     Active Substance: LENALIDOMIDE
     Indication: Product used for unknown indication
     Dosage: 14 DAYS ON, 7 DAYS OFF
     Route: 048
     Dates: start: 20220329
  2. VELCADE [Concomitant]
     Active Substance: BORTEZOMIB
  3. ATIVAN [Concomitant]
     Active Substance: LORAZEPAM
  4. PLAVIX [Concomitant]
     Active Substance: CLOPIDOGREL BISULFATE

REACTIONS (4)
  - Constipation [Not Recovered/Not Resolved]
  - Fatigue [Not Recovered/Not Resolved]
  - Hypoglycaemia [Not Recovered/Not Resolved]
  - Disorientation [Not Recovered/Not Resolved]
